FAERS Safety Report 7030959-8 (Version None)
Quarter: 2010Q4

REPORT INFORMATION
  Report Type: 
  Country: None (occurrence: None)
  Receive Date: 20101006
  Receipt Date: 20090917
  Transmission Date: 20110411
  Serious: No
  Sender: FDA-Public Use
  Company Number: US-BRISTOL-MYERS SQUIBB COMPANY-14783674

PATIENT
  Age: 81 Year
  Sex: Female
  Weight: 73 kg

DRUGS (7)
  1. KENALOG-40 [Suspect]
     Indication: MOBILITY DECREASED
     Dates: start: 20090831
  2. BENICAR [Concomitant]
  3. ZYRTEC [Concomitant]
  4. RESTORIL [Concomitant]
  5. FENTANYL-75 [Concomitant]
  6. MULTI-VITAMIN [Concomitant]
  7. CALCIUM CITRATE [Concomitant]

REACTIONS (1)
  - RASH PRURITIC [None]
